FAERS Safety Report 8488816-6 (Version None)
Quarter: 2012Q2

REPORT INFORMATION
  Report Type: 
  Country: None (occurrence: None)
  Receive Date: 20120626
  Receipt Date: 20120614
  Transmission Date: 20120825
  Serious: Yes (Hospitalization)
  Sender: FDA-Public Use
  Company Number: TCI2012A03144

PATIENT
  Age: 71 Year
  Sex: Male

DRUGS (5)
  1. HALCION [Concomitant]
  2. GASLON (IRSOGLADINE MALEATE) [Concomitant]
  3. ACTOS [Suspect]
     Indication: TYPE 2 DIABETES MELLITUS
     Dosage: 30 MG (30 MG, 1 D)
     Route: 048
     Dates: start: 20080801, end: 20120501
  4. OLMESARTAN MEDOXOMIL [Concomitant]
  5. ADALAT [Concomitant]

REACTIONS (1)
  - RENAL CANCER [None]
